FAERS Safety Report 17896171 (Version 1)
Quarter: 2020Q2

REPORT INFORMATION
  Report Type: Spontaneous
  Country: US (occurrence: US)
  Receive Date: 20200615
  Receipt Date: 20200615
  Transmission Date: 20200714
  Serious: Yes (Other)
  Sender: FDA-Public Use
  Company Number: US-PFIZER INC-2020224876

PATIENT
  Age: 15 Year
  Sex: Male
  Weight: 42 kg

DRUGS (20)
  1. ENFLURANE. [Suspect]
     Active Substance: ENFLURANE
     Indication: GENERAL ANAESTHESIA
     Dosage: UNK
  2. ENFLURANE. [Suspect]
     Active Substance: ENFLURANE
     Indication: MAINTENANCE OF ANAESTHESIA
  3. MORPHINE SULFATE. [Suspect]
     Active Substance: MORPHINE SULFATE
     Indication: GENERAL ANAESTHESIA
     Dosage: 6 MG
     Route: 030
  4. ATROPINE SULFATE. [Suspect]
     Active Substance: ATROPINE SULFATE
     Indication: GENERAL ANAESTHESIA
     Dosage: 0.4 MG
     Route: 030
  5. FENTANYL CITRATE. [Suspect]
     Active Substance: FENTANYL CITRATE
     Indication: MAINTENANCE OF ANAESTHESIA
  6. CHLORPROMAZINE HYDROCHLORIDE. [Suspect]
     Active Substance: CHLORPROMAZINE HYDROCHLORIDE
     Indication: MAINTENANCE OF ANAESTHESIA
  7. SUCCINYLCHOLINE CHLORIDE. [Suspect]
     Active Substance: SUCCINYLCHOLINE CHLORIDE
     Indication: ENDOTRACHEAL INTUBATION
  8. INNOVAR [Suspect]
     Active Substance: DROPERIDOL\FENTANYL CITRATE
     Indication: PREMEDICATION
  9. ATROPINE SULFATE. [Suspect]
     Active Substance: ATROPINE SULFATE
     Indication: PREMEDICATION
     Dosage: 0.4 MG
     Route: 030
  10. NITROUS OXIDE\OXYGEN [Suspect]
     Active Substance: NITROUS OXIDE\OXYGEN
     Indication: MAINTENANCE OF ANAESTHESIA
  11. INNOVAR [Suspect]
     Active Substance: DROPERIDOL\FENTANYL CITRATE
     Indication: MAINTENANCE OF ANAESTHESIA
  12. THIAMYLAL SODIUM [Suspect]
     Active Substance: THIAMYLAL SODIUM
     Indication: GENERAL ANAESTHESIA
     Dosage: 200 MG
     Route: 042
  13. THIAMYLAL SODIUM [Suspect]
     Active Substance: THIAMYLAL SODIUM
     Indication: INDUCTION OF ANAESTHESIA
  14. GALLAMINE [Suspect]
     Active Substance: GALLAMINE
     Indication: GENERAL ANAESTHESIA
     Dosage: 20 MG
     Route: 042
  15. NITROUS OXIDE\OXYGEN [Suspect]
     Active Substance: NITROUS OXIDE\OXYGEN
     Indication: GENERAL ANAESTHESIA
     Dosage: 60%
  16. MORPHINE SULFATE. [Suspect]
     Active Substance: MORPHINE SULFATE
     Indication: PREMEDICATION
  17. SUCCINYLCHOLINE CHLORIDE. [Suspect]
     Active Substance: SUCCINYLCHOLINE CHLORIDE
     Indication: GENERAL ANAESTHESIA
     Dosage: 80 MG
     Route: 042
  18. KETAMINE HCL [Suspect]
     Active Substance: KETAMINE HYDROCHLORIDE
     Indication: MAINTENANCE OF ANAESTHESIA
  19. GALLAMINE [Suspect]
     Active Substance: GALLAMINE
     Indication: ENDOTRACHEAL INTUBATION
  20. INNOVAR [Suspect]
     Active Substance: DROPERIDOL\FENTANYL CITRATE
     Indication: SEDATION

REACTIONS (3)
  - Tachycardia [Recovered/Resolved]
  - Metabolic acidosis [Recovered/Resolved]
  - Hyperthermia malignant [Recovered/Resolved]
